FAERS Safety Report 9307096 (Version 1)
Quarter: 2013Q2

REPORT INFORMATION
  Report Type: Spontaneous
  Country: US (occurrence: US)
  Receive Date: 20130524
  Receipt Date: 20130524
  Transmission Date: 20140414
  Serious: No
  Sender: FDA-Public Use
  Company Number: US-009507513-1305USA012626

PATIENT
  Age: 23 Year
  Sex: Female
  Weight: 86.35 kg

DRUGS (1)
  1. NUVARING [Suspect]
     Indication: CONTRACEPTION
     Dosage: 3 WEEKS IN ONE WEEK RING
     Dates: start: 20130512, end: 20130516

REACTIONS (1)
  - Inappropriate schedule of drug administration [Unknown]
